FAERS Safety Report 9791443 (Version 1)
Quarter: 2014Q1

REPORT INFORMATION
  Report Type: Report from Study
  Country: US (occurrence: US)
  Receive Date: 20140101
  Receipt Date: 20140101
  Transmission Date: 20141002
  Serious: Yes (Hospitalization)
  Sender: FDA-Public Use
  Company Number: PHEH2013US026498

PATIENT
  Age: 74 Year
  Sex: Female

DRUGS (3)
  1. EXELON PATCH [Suspect]
     Indication: DEMENTIA ALZHEIMER^S TYPE
     Dosage: 4.6 MG, DAILY
     Route: 062
     Dates: start: 20131218
  2. NAMENDA [Suspect]
     Dosage: UNK UKN, UNK
  3. ARICEPT [Suspect]
     Dosage: UNK UKN, UNK

REACTIONS (2)
  - Oxygen saturation decreased [Unknown]
  - Myocardial infarction [Unknown]
